FAERS Safety Report 14985001 (Version 10)
Quarter: 2025Q2

REPORT INFORMATION
  Report Type: Spontaneous
  Country: US (occurrence: US)
  Receive Date: 20180607
  Receipt Date: 20250626
  Transmission Date: 20250716
  Serious: Yes (Other)
  Sender: PFIZER
  Company Number: US-PFIZER INC-2018227324

PATIENT
  Age: 65 Year
  Sex: Female

DRUGS (6)
  1. XELJANZ XR [Suspect]
     Active Substance: TOFACITINIB CITRATE
     Dosage: 11 MG, DAILY
     Route: 048
  2. XELJANZ XR [Suspect]
     Active Substance: TOFACITINIB CITRATE
  3. LATANOPROST [Concomitant]
     Active Substance: LATANOPROST
  4. ALLOPURINOL [Concomitant]
     Active Substance: ALLOPURINOL
  5. SERTRALINE [Concomitant]
     Active Substance: SERTRALINE HYDROCHLORIDE
  6. PREDNISONE [Concomitant]
     Active Substance: PREDNISONE

REACTIONS (3)
  - Cataract [Unknown]
  - Therapeutic response unexpected [Unknown]
  - Dry eye [Unknown]
